FAERS Safety Report 10012713 (Version 1)
Quarter: 2014Q1

REPORT INFORMATION
  Report Type: Spontaneous
  Country: JP (occurrence: JP)
  Receive Date: 20140314
  Receipt Date: 20140314
  Transmission Date: 20141002
  Serious: Yes (Life-Threatening, Other)
  Sender: FDA-Public Use
  Company Number: JP-ASTRAZENECA-2014SE17533

PATIENT
  Age: 21 Year
  Sex: Male
  Weight: 70 kg

DRUGS (4)
  1. SEROQUEL [Suspect]
     Indication: SUICIDE ATTEMPT
     Route: 048
     Dates: start: 20140305, end: 20140305
  2. ANTIDEPRESSANTS [Concomitant]
     Indication: SUICIDE ATTEMPT
     Route: 048
     Dates: start: 20140305, end: 20140305
  3. PSYCHOTROPIC AGENTS [Concomitant]
     Indication: SUICIDE ATTEMPT
     Route: 048
     Dates: start: 20140305, end: 20140305
  4. HYPNOTICS AND SEDATIVES, ANTIANXIETICS [Concomitant]
     Indication: SUICIDE ATTEMPT
     Route: 048
     Dates: start: 20140305, end: 20140305

REACTIONS (3)
  - Intentional overdose [Unknown]
  - Suicide attempt [Unknown]
  - Somnolence [Unknown]
